FAERS Safety Report 8366378-1 (Version None)
Quarter: 2012Q2

REPORT INFORMATION
  Report Type: 
  Country: None (occurrence: None)
  Receive Date: 20120517
  Receipt Date: 20120510
  Transmission Date: 20120825
  Serious: Yes (Other)
  Sender: FDA-Public Use
  Company Number: US-PFIZER INC-2012114814

PATIENT
  Age: 26 Year
  Sex: Male

DRUGS (7)
  1. BENADRYL [Concomitant]
     Indication: VOMITING
     Dosage: 50 MG, EVERY 4 HRS
  2. PROMETHAZINE [Concomitant]
     Indication: VOMITING
     Dosage: 25 MG, EVERY 4 HRS
  3. BENADRYL [Concomitant]
     Indication: NAUSEA
  4. PROTONIX [Suspect]
     Indication: BLOOD DISORDER
     Dosage: 40 MG, 2X/DAY
     Route: 042
     Dates: start: 20061201
  5. INSULIN [Concomitant]
     Indication: DIABETES MELLITUS
     Dosage: UNK
  6. PRIMAXIN [Concomitant]
     Dosage: 500 MG, 3X/DAY
     Route: 042
  7. PROMETHAZINE [Concomitant]
     Indication: NAUSEA

REACTIONS (1)
  - MYCOBACTERIAL INFECTION [None]
